FAERS Safety Report 5711370-6 (Version None)
Quarter: 2008Q2

REPORT INFORMATION
  Report Type: 
  Country: None (occurrence: None)
  Receive Date: 20080421
  Receipt Date: 20080417
  Transmission Date: 20081010
  Serious: Yes (Hospitalization)
  Sender: FDA-Public Use
  Company Number: B0517361A

PATIENT
  Age: 41 Year
  Sex: Male

DRUGS (4)
  1. LAMOTRIGINE [Suspect]
     Indication: EPILEPSY
     Dosage: .5MG PER DAY
     Route: 048
  2. CARBAMAZEPINE [Suspect]
     Indication: EPILEPSY
     Dosage: 1200MG THREE TIMES PER DAY
     Route: 048
     Dates: end: 20070823
  3. LEVOTHROID [Concomitant]
     Indication: HYPOTHYROIDISM
     Dosage: 50UG PER DAY
     Route: 048
  4. ACTRAPID [Concomitant]
     Indication: DIABETES MELLITUS
     Route: 058

REACTIONS (3)
  - ANTICONVULSANT DRUG LEVEL INCREASED [None]
  - DIZZINESS [None]
  - DYSARTHRIA [None]
